FAERS Safety Report 7451385-3 (Version None)
Quarter: 2011Q2

REPORT INFORMATION
  Report Type: 
  Country: None (occurrence: None)
  Receive Date: 20110502
  Receipt Date: 20110426
  Transmission Date: 20111010
  Serious: Yes (Hospitalization, Other)
  Sender: FDA-Public Use
  Company Number: US-ALEXION-A201100193

PATIENT
  Sex: Male

DRUGS (1)
  1. SOLIRIS [Suspect]
     Indication: PAROXYSMAL NOCTURNAL HAEMOGLOBINURIA
     Dosage: UNK
     Route: 042
     Dates: start: 20100301

REACTIONS (12)
  - CHRONIC LYMPHOCYTIC LEUKAEMIA RECURRENT [None]
  - DYSPNOEA [None]
  - ANAEMIA [None]
  - FALL [None]
  - ASCITES [None]
  - HAEMATOCHEZIA [None]
  - LETHARGY [None]
  - SEPSIS [None]
  - PLATELET COUNT DECREASED [None]
  - DIARRHOEA [None]
  - HEAD INJURY [None]
  - OEDEMA PERIPHERAL [None]
